FAERS Safety Report 6572672-7 (Version None)
Quarter: 2010Q1

REPORT INFORMATION
  Report Type: 
  Country: None (occurrence: None)
  Receive Date: 20100205
  Receipt Date: 20100203
  Transmission Date: 20100710
  Serious: Yes (Hospitalization, Disabling)
  Sender: FDA-Public Use
  Company Number: US-B.I. PHARMACEUTICALS,INC./RIDGEFIELD-2010-BP-01423BP

PATIENT
  Sex: Male

DRUGS (6)
  1. SPIRIVA [Suspect]
     Indication: CHRONIC OBSTRUCTIVE PULMONARY DISEASE
     Dosage: 18 MCG
     Route: 055
  2. COREG [Concomitant]
     Dates: start: 20080101
  3. SYNTHROID [Concomitant]
     Dates: start: 20080101
  4. ZAROXOLYN [Concomitant]
     Dates: start: 20080101
  5. CELEXA [Concomitant]
     Dates: start: 20080101
  6. BUMEX [Concomitant]
     Dates: start: 20080101

REACTIONS (1)
  - URINARY RETENTION [None]
